FAERS Safety Report 25289091 (Version 1)
Quarter: 2025Q2

REPORT INFORMATION
  Report Type: Spontaneous
  Country: ES (occurrence: ES)
  Receive Date: 20250509
  Receipt Date: 20250509
  Transmission Date: 20250717
  Serious: Yes (Life-Threatening, Hospitalization)
  Sender: TEVA
  Company Number: None

PATIENT
  Age: 89 Year
  Sex: Female

DRUGS (2)
  1. CLOPIDOGREL [Interacting]
     Active Substance: CLOPIDOGREL BISULFATE
     Indication: Myocardial ischaemia
     Route: 048
     Dates: start: 20230419, end: 20250116
  2. ASPIRIN [Interacting]
     Active Substance: ASPIRIN
     Indication: Myocardial ischaemia
     Dosage: 30 TABLETS (POLYPROPYLENE - ALUMINUM)
     Route: 048
     Dates: start: 20230419

REACTIONS (3)
  - Gastrointestinal haemorrhage [Recovered/Resolved]
  - Hypotension [Recovered/Resolved]
  - Anaemia [Recovered/Resolved]

NARRATIVE: CASE EVENT DATE: 20250116
